FAERS Safety Report 9159866 (Version 3)
Quarter: 2014Q3

REPORT INFORMATION
  Report Type: Spontaneous
  Country: US (occurrence: US)
  Receive Date: 20130313
  Receipt Date: 20140820
  Transmission Date: 20150326
  Serious: Yes (Other)
  Sender: FDA-Public Use
  Company Number: US-PFIZER INC-2013081401

PATIENT
  Age: 62 Year
  Sex: Female
  Weight: 54.42 kg

DRUGS (2)
  1. LYRICA [Suspect]
     Active Substance: PREGABALIN
     Dosage: UNK
     Route: 048
     Dates: start: 201302
  2. LYRICA [Suspect]
     Active Substance: PREGABALIN
     Indication: NEURALGIA
     Dosage: UNK
     Route: 048

REACTIONS (16)
  - Osteoporosis [Unknown]
  - Intervertebral disc degeneration [Unknown]
  - Pain [Unknown]
  - Arthritis [Unknown]
  - Paralysis [Unknown]
  - Spinal fracture [Unknown]
  - Joint injury [Unknown]
  - Thoracic vertebral fracture [Unknown]
  - Foot fracture [Unknown]
  - Intervertebral disc compression [Unknown]
  - Fall [Unknown]
  - Gait disturbance [Unknown]
  - Back disorder [Unknown]
  - Road traffic accident [Unknown]
  - Foot fracture [Unknown]
  - Musculoskeletal disorder [Unknown]

NARRATIVE: CASE EVENT DATE: 20120831
